FAERS Safety Report 6596229 (Version 12)
Quarter: 2014Q3

REPORT INFORMATION
  Report Type: Spontaneous
  Country: US (occurrence: US)
  Receive Date: 20080327
  Receipt Date: 20140825
  Transmission Date: 20150326
  Serious: Yes (Hospitalization, Other)
  Sender: FDA-Public Use
  Company Number: PHEH2008US02970

PATIENT
  Sex: Female
  Weight: 70.74 kg

DRUGS (24)
  1. ZOMETA [Suspect]
     Active Substance: ZOLEDRONIC ACID
     Dosage: UNK UKN, UNK
     Route: 042
     Dates: start: 2001
  2. VALTREX [Concomitant]
     Active Substance: VALACYCLOVIR HYDROCHLORIDE
  3. ADRIAMYCIN [Concomitant]
     Active Substance: DOXORUBICIN HYDROCHLORIDE
  4. ZOMETA [Suspect]
     Active Substance: ZOLEDRONIC ACID
     Dosage: UNK UKN, UNK
     Route: 042
  5. BIAXIN [Concomitant]
     Active Substance: CLARITHROMYCIN
  6. LIPITOR [Concomitant]
     Active Substance: ATORVASTATIN CALCIUM
  7. AZITHROMYCIN [Concomitant]
     Active Substance: AZITHROMYCIN ANHYDROUS
  8. OSMOPREP (PHOSPHORIC ACID SODIUM) [Concomitant]
  9. BENAZEPRIL [Concomitant]
     Active Substance: BENAZEPRIL\BENAZEPRIL HYDROCHLORIDE
  10. HYDROCORTISONE. [Concomitant]
     Active Substance: HYDROCORTISONE
  11. HYDROCODONE [Concomitant]
     Active Substance: HYDROCODONE
  12. BACLOFEN. [Concomitant]
     Active Substance: BACLOFEN
  13. CLINDAMYCIN [Concomitant]
     Active Substance: CLINDAMYCIN\CLINDAMYCIN PHOSPHATE
  14. AREDIA [Suspect]
     Active Substance: PAMIDRONATE DISODIUM
     Indication: METASTASES TO BONE
     Dosage: UNK UKN, UNK
     Route: 042
     Dates: start: 1999
  15. BIAFINE [Concomitant]
  16. CEPHALEXIN. [Concomitant]
     Active Substance: CEPHALEXIN
  17. CYTOXAN [Concomitant]
     Active Substance: CYCLOPHOSPHAMIDE
  18. PROMETHAZINE W/CODEINE [Concomitant]
  19. PERIOGARD [Concomitant]
     Active Substance: CHLORHEXIDINE GLUCONATE
  20. XELODA [Concomitant]
     Active Substance: CAPECITABINE
     Dosage: UNK UKN, UNK
     Dates: start: 200912, end: 201101
  21. AREDIA [Suspect]
     Active Substance: PAMIDRONATE DISODIUM
     Indication: BREAST CANCER METASTATIC
     Dosage: UNK UKN, UNK
     Route: 042
     Dates: start: 2000
  22. TRANDOLAPRIL. [Concomitant]
     Active Substance: TRANDOLAPRIL
  23. ENDOCET [Concomitant]
     Active Substance: ACETAMINOPHEN\OXYCODONE HYDROCHLORIDE
  24. LYRICA [Concomitant]
     Active Substance: PREGABALIN

REACTIONS (177)
  - Mucosal inflammation [Unknown]
  - Pneumothorax [Recovered/Resolved]
  - Intervertebral disc space narrowing [Unknown]
  - Diastolic dysfunction [Unknown]
  - Lymphadenopathy [Unknown]
  - Abdominal pain [Unknown]
  - Hepatic steatosis [Unknown]
  - Asthma [Unknown]
  - Flank pain [Unknown]
  - Tooth resorption [Unknown]
  - Ulna fracture [Unknown]
  - Bone pain [Unknown]
  - Cholecystitis [Unknown]
  - Gastric mucosa erythema [Unknown]
  - Nodule [Unknown]
  - Pericardial effusion [Unknown]
  - Second primary malignancy [Unknown]
  - Dysphonia [Unknown]
  - Pharyngeal erythema [Unknown]
  - Viral infection [Unknown]
  - Costochondritis [Unknown]
  - Vertebral foraminal stenosis [Unknown]
  - Leukocytosis [Unknown]
  - Adenocarcinoma [Unknown]
  - Chest pain [Recovering/Resolving]
  - Gallbladder disorder [Unknown]
  - Cholelithiasis [Unknown]
  - Anaemia [Recovering/Resolving]
  - Pain [Unknown]
  - Dental plaque [Unknown]
  - Bradycardia [Unknown]
  - Aortic valve incompetence [Unknown]
  - Neoplasm skin [Unknown]
  - Intervertebral disc protrusion [Unknown]
  - Hepatosplenomegaly [Unknown]
  - Micturition urgency [Unknown]
  - Urine abnormality [Unknown]
  - Hypertrophy [Unknown]
  - Tenderness [Unknown]
  - Phlebolith [Unknown]
  - Eye pain [Unknown]
  - Oedema peripheral [Unknown]
  - Nephrolithiasis [Unknown]
  - Myalgia [Unknown]
  - Biliary dilatation [Unknown]
  - Exposed bone in jaw [Unknown]
  - Dry eye [Unknown]
  - Pulmonary fibrosis [Unknown]
  - Thrombocytopenia [Unknown]
  - Oral mucosa erosion [Unknown]
  - Pleural effusion [Unknown]
  - Melaena [Unknown]
  - Spinal osteoarthritis [Unknown]
  - Tricuspid valve incompetence [Unknown]
  - Left ventricular hypertrophy [Unknown]
  - Leukopenia [Unknown]
  - Back pain [Unknown]
  - Dysplasia [Unknown]
  - Polyuria [Unknown]
  - Pyelonephritis acute [Unknown]
  - Haemorrhoidal haemorrhage [Unknown]
  - Breast mass [Unknown]
  - Vomiting [Unknown]
  - Hip fracture [Unknown]
  - Asthenia [Unknown]
  - Pathogen resistance [Unknown]
  - Pyrexia [Unknown]
  - Pallor [Unknown]
  - Perinephric abscess [Unknown]
  - Diverticulitis [Unknown]
  - Musculoskeletal discomfort [Unknown]
  - Myopia [Unknown]
  - Pneumonitis [Unknown]
  - Metastases to bone [Unknown]
  - Wound [Unknown]
  - Gastrointestinal haemorrhage [Recovered/Resolved]
  - Scar [Unknown]
  - Injury [Unknown]
  - Osteosclerosis [Unknown]
  - Crohn^s disease [Unknown]
  - Dyspnoea exertional [Unknown]
  - Dysuria [Unknown]
  - Faecal incontinence [Unknown]
  - Constipation [Unknown]
  - Neck pain [Unknown]
  - Mental disorder [Unknown]
  - Infection [Unknown]
  - Pulmonary valve incompetence [Unknown]
  - Muscle tightness [Unknown]
  - Decreased appetite [Unknown]
  - Neutropenia [Unknown]
  - Appendicitis [Unknown]
  - Pterygium [Unknown]
  - Diverticulum intestinal [Unknown]
  - Small intestinal obstruction [Unknown]
  - Small intestinal stenosis [Unknown]
  - Small intestine ulcer [Unknown]
  - Vitamin D deficiency [Unknown]
  - Nausea [Unknown]
  - Head injury [Unknown]
  - Joint swelling [Unknown]
  - Oropharyngeal pain [Unknown]
  - Mastitis [Unknown]
  - Erythema [Unknown]
  - Kidney infection [Unknown]
  - Bandaemia [Unknown]
  - Osteopenia [Unknown]
  - Alopecia [Unknown]
  - Hepatic cyst [Unknown]
  - Wheezing [Unknown]
  - Malignant neoplasm progression [Unknown]
  - Oral disorder [Unknown]
  - Mycobacterium fortuitum infection [Unknown]
  - Glucose tolerance impaired [Unknown]
  - Rectal haemorrhage [Unknown]
  - Dyspnoea [Unknown]
  - Abdominal pain upper [Unknown]
  - Sinus congestion [Unknown]
  - Productive cough [Unknown]
  - Haematochezia [Unknown]
  - Diarrhoea [Unknown]
  - Pulmonary granuloma [Unknown]
  - Ocular hyperaemia [Unknown]
  - Humerus fracture [Unknown]
  - Spondylolisthesis [Unknown]
  - Osteoarthritis [Unknown]
  - Pyelonephritis [Unknown]
  - Osteonecrosis of jaw [Unknown]
  - Emotional distress [Unknown]
  - Anxiety [Unknown]
  - Physical disability [Unknown]
  - Urinary tract infection [Unknown]
  - Skin lesion [Unknown]
  - Left atrial dilatation [Unknown]
  - Pruritus [Unknown]
  - Metastases to spine [Unknown]
  - Haemorrhoids [Unknown]
  - Pollakiuria [Unknown]
  - Sinusitis [Unknown]
  - Ligament disorder [Unknown]
  - Fall [Unknown]
  - Cystitis [Unknown]
  - Pain in extremity [Unknown]
  - Faeces discoloured [Unknown]
  - Coeliac disease [Unknown]
  - Breast necrosis [Unknown]
  - Catheter site haemorrhage [Unknown]
  - Ecchymosis [Unknown]
  - Throat irritation [Unknown]
  - Swelling face [Unknown]
  - Somnolence [Unknown]
  - Sepsis [Unknown]
  - Arthralgia [Unknown]
  - Bone fragmentation [Unknown]
  - Pancreatitis acute [Unknown]
  - Renal failure chronic [Unknown]
  - Vertebral osteophyte [Unknown]
  - Deep vein thrombosis [Unknown]
  - Cellulitis [Unknown]
  - Gastrooesophageal reflux disease [Unknown]
  - Pneumonia [Unknown]
  - Bronchitis [Unknown]
  - Breast calcifications [Unknown]
  - Laryngitis [Unknown]
  - Depression [Unknown]
  - Aphthous stomatitis [Unknown]
  - Dizziness [Unknown]
  - Eye swelling [Unknown]
  - Atelectasis [Unknown]
  - Muscle spasms [Unknown]
  - Mitral valve disease [Unknown]
  - Post procedural complication [Unknown]
  - Ascites [Unknown]
  - Basal cell carcinoma [Unknown]
  - Urethritis [Unknown]
  - Fatigue [Unknown]
  - Lung disorder [Unknown]
